FAERS Safety Report 5025432-2 (Version None)
Quarter: 2006Q2

REPORT INFORMATION
  Report Type: 
  Country: None (occurrence: None)
  Receive Date: 20060608
  Receipt Date: 20060602
  Transmission Date: 20061013
  Serious: Yes (Death)
  Sender: FDA-Public Use
  Company Number: TPA2006A00912

PATIENT
  Sex: 0

DRUGS (2)
  1. ACTOS [Suspect]
     Indication: DIABETES MELLITUS INADEQUATE CONTROL
     Dosage: PER ORAL
     Route: 048
  2. METFORMIN [Concomitant]

REACTIONS (2)
  - CALCULUS URINARY [None]
  - DUODENAL ULCER PERFORATION [None]
